FAERS Safety Report 8592887-6 (Version None)
Quarter: 2012Q3

REPORT INFORMATION
  Report Type: 
  Country: None (occurrence: None)
  Receive Date: 20120814
  Receipt Date: 20120806
  Transmission Date: 20120928
  Serious: Yes (Other)
  Sender: FDA-Public Use
  Company Number: GB-ABBOTT-12P-167-0966294-00

PATIENT
  Age: 27 Year
  Sex: Male
  Weight: 56.4 kg

DRUGS (1)
  1. HUMIRA [Suspect]
     Indication: PSORIASIS
     Dosage: 2/52 (1 EVERY 2 WEEKS)
     Route: 030
     Dates: start: 20120101

REACTIONS (3)
  - LOCAL REACTION [None]
  - RHINITIS ALLERGIC [None]
  - RHINORRHOEA [None]
